FAERS Safety Report 4463053-0 (Version None)
Quarter: 2004Q3

REPORT INFORMATION
  Report Type: 
  Country: None (occurrence: None)
  Receive Date: 20040928
  Receipt Date: 20040917
  Transmission Date: 20050211
  Serious: Yes (Other)
  Sender: FDA-Public Use
  Company Number: STA-AE-04-MTX-308

PATIENT
  Age: 53 Year
  Sex: Male

DRUGS (4)
  1. METHOTREXATE [Suspect]
     Indication: ACUTE PROMYELOCYTIC LEUKAEMIA
     Dosage: 25 MG 1 X PER 1 WK
     Dates: start: 20030901
  2. ALTRA, CONTROL FOR GEMTUZUMAB OZOGAMICIN (ALL-TRANS RETINOIC ACID, CON [Suspect]
     Indication: ACUTE PROMYELOCYTIC LEUKAEMIA
     Dosage: 80 MG 1 X PER 1 DAY
     Dates: start: 20030901
  3. MERCAPTOPURINE [Suspect]
     Indication: ACUTE PROMYELOCYTIC LEUKAEMIA
     Dosage: 50 MG 1 X PER 1 DAY
     Dates: start: 20030901
  4. CHEMOTHERAPEUTIC AGENTS, CONTROL FOR GEMTUZUMAB OZOGAMINCIN, INJECTION [Suspect]

REACTIONS (2)
  - ADENOCARCINOMA [None]
  - COLECTOMY PARTIAL [None]
